FAERS Safety Report 7956776-X (Version None)
Quarter: 2011Q4

REPORT INFORMATION
  Report Type: 
  Country: None (occurrence: None)
  Receive Date: 20111205
  Receipt Date: 20111130
  Transmission Date: 20120403
  Serious: Yes (Hospitalization, Other)
  Sender: FDA-Public Use
  Company Number: US-SHIRE-ALL1-2011-04698

PATIENT
  Sex: Male
  Weight: 68.027 kg

DRUGS (5)
  1. LIALDA [Suspect]
     Indication: COLITIS ULCERATIVE
     Dosage: 2.4 G, 1X/DAY:QD
     Route: 048
     Dates: end: 20110401
  2. REMICADE [Suspect]
     Indication: CROHN'S DISEASE
     Dosage: 450 MG, UNKNOWN
     Route: 042
     Dates: start: 20101001, end: 20110401
  3. REMICADE [Suspect]
     Indication: COLITIS ULCERATIVE
     Dosage: 750 MG, UNKNOWN
     Route: 042
     Dates: start: 20110401, end: 20110601
  4. LIALDA [Suspect]
     Dosage: 4.8 G, 1X/DAY:QD
     Route: 048
     Dates: start: 20110401, end: 20110601
  5. PREDNISONE [Concomitant]
     Indication: COLITIS ULCERATIVE
     Dosage: 40 MG, AS REQ'D (1 IN 1 DAY)
     Route: 048

REACTIONS (2)
  - COLITIS [None]
  - ILEOSTOMY [None]
